FAERS Safety Report 17758843 (Version 2)
Quarter: 2020Q2

REPORT INFORMATION
  Report Type: Spontaneous
  Country: US (occurrence: US)
  Receive Date: 20200507
  Receipt Date: 20200519
  Transmission Date: 20200714
  Serious: No
  Sender: FDA-Public Use
  Company Number: US-009507513-2005USA002010

PATIENT
  Sex: Female

DRUGS (1)
  1. JANUVIA [Suspect]
     Active Substance: SITAGLIPTIN PHOSPHATE
     Dosage: 1 TABLET DAILY
     Route: 048
     Dates: start: 202001

REACTIONS (3)
  - No adverse event [Unknown]
  - Product quality issue [Unknown]
  - Suspected counterfeit product [Unknown]

NARRATIVE: CASE EVENT DATE: 2020
